FAERS Safety Report 14569911 (Version 1)
Quarter: 2018Q1

REPORT INFORMATION
  Report Type: Spontaneous
  Country: US (occurrence: US)
  Receive Date: 20180225
  Receipt Date: 20180225
  Transmission Date: 20180509
  Serious: No
  Sender: FDA-Public Use
  Company Number: US-JNJFOC-20180207855

PATIENT
  Sex: Male

DRUGS (3)
  1. SUDAFED SINUS ADVANCE [Suspect]
     Active Substance: IBUPROFEN\PSEUDOEPHEDRINE HYDROCHLORIDE
     Indication: EAR CONGESTION
     Route: 065
  2. SUDAFED SINUS ADVANCE [Suspect]
     Active Substance: IBUPROFEN\PSEUDOEPHEDRINE HYDROCHLORIDE
     Indication: TINNITUS
     Route: 065
  3. SUDAFED SINUS ADVANCE [Suspect]
     Active Substance: IBUPROFEN\PSEUDOEPHEDRINE HYDROCHLORIDE
     Indication: EUSTACHIAN TUBE OBSTRUCTION
     Route: 065

REACTIONS (1)
  - Product use in unapproved indication [Unknown]
